FAERS Safety Report 11501308 (Version 1)
Quarter: 2015Q3

REPORT INFORMATION
  Report Type: Spontaneous
  Country: BR (occurrence: BR)
  Receive Date: 20150914
  Receipt Date: 20150914
  Transmission Date: 20151125
  Serious: Yes (Other)
  Sender: FDA-Public Use
  Company Number: BR-PFIZER INC-2015298401

PATIENT
  Age: 85 Year
  Sex: Female
  Weight: 68 kg

DRUGS (6)
  1. XALATAN [Suspect]
     Active Substance: LATANOPROST
     Indication: GLAUCOMA
     Dosage: UNK
     Route: 047
     Dates: start: 2009
  2. OMEPRAZOLE. [Concomitant]
     Active Substance: OMEPRAZOLE
     Indication: PROPHYLAXIS
     Dosage: 2 DF, DAILY
  3. SERENATA [Concomitant]
     Active Substance: SERTRALINE HYDROCHLORIDE
     Dosage: 50 MG, DAILY
  4. ENALAPRIL [Concomitant]
     Active Substance: ENALAPRIL
     Dosage: 1 DF, DAILY
  5. ASPIRINA [Concomitant]
     Active Substance: ASPIRIN
     Dosage: 100 MG, DAILY
  6. XALATAN [Suspect]
     Active Substance: LATANOPROST
     Dosage: ONE DROP IN BOTH EYES IN THE MORNING AND AT NIGHT
     Route: 047
     Dates: start: 201507

REACTIONS (4)
  - Cataract [Unknown]
  - Memory impairment [Unknown]
  - Off label use [Not Recovered/Not Resolved]
  - Cerebrovascular accident [Unknown]

NARRATIVE: CASE EVENT DATE: 2010
